FAERS Safety Report 20235268 (Version 1)
Quarter: 2021Q4

REPORT INFORMATION
  Report Type: Spontaneous
  Country: US (occurrence: US)
  Receive Date: 20211228
  Receipt Date: 20211228
  Transmission Date: 20220304
  Serious: Yes (Other)
  Sender: FDA-Public Use
  Company Number: US-ASTELLAS-2021US044201

PATIENT
  Age: 80 Year
  Sex: Female

DRUGS (2)
  1. PADCEV [Suspect]
     Active Substance: ENFORTUMAB VEDOTIN-EJFV
     Indication: Transitional cell carcinoma
     Dosage: 1.25 MG/KG, CYCLIC (2 L) (DAYS 1, 8, AND 15 OF EVERY 28-DAY CYCLE)
     Route: 065
  2. PADCEV [Suspect]
     Active Substance: ENFORTUMAB VEDOTIN-EJFV
     Dosage: 0.75 MG/KG, UNKNOWN FREQ.
     Route: 065

REACTIONS (5)
  - Neuropathy peripheral [Unknown]
  - Gait disturbance [Unknown]
  - Balance disorder [Unknown]
  - Decreased appetite [Unknown]
  - Fatigue [Unknown]
